FAERS Safety Report 9254705 (Version 1)
Quarter: 2013Q2

REPORT INFORMATION
  Report Type: Spontaneous
  Country: BR (occurrence: None)
  Receive Date: 20130419
  Receipt Date: 20130419
  Transmission Date: 20140414
  Serious: Yes (Life-Threatening)
  Sender: FDA-Public Use
  Company Number: FK201301200

PATIENT
  Age: 34 Year
  Sex: Male
  Weight: 76 kg

DRUGS (4)
  1. IRINOTECAN [Suspect]
     Indication: GASTRIC CANCER
     Dosage: 180.33 MG/M2 , 1 IN 14 D
     Dates: start: 20130408, end: 20130408
  2. ONDASENTRON [Concomitant]
  3. DEXAMETHASONA [Concomitant]
  4. ATROPIN (ATROPINE) [Suspect]
     Dosage: 1 DOSAGE FORMS, 1 IN 1 , SUBCUTANEOUS
     Dates: start: 20130408, end: 20130408

REACTIONS (7)
  - Anaphylactic reaction [None]
  - Visual impairment [None]
  - Tongue disorder [None]
  - Bradycardia [None]
  - Hypotension [None]
  - Dizziness [None]
  - Infusion related reaction [None]
